FAERS Safety Report 10429450 (Version 1)
Quarter: 2014Q3

REPORT INFORMATION
  Report Type: Spontaneous
  Country: US (occurrence: None)
  Receive Date: 20140902
  Receipt Date: 20140902
  Transmission Date: 20150326
  Serious: Yes (Other)
  Sender: FDA-Public Use
  Company Number: None

PATIENT
  Age: 71 Year
  Sex: Female
  Weight: 56.25 kg

DRUGS (1)
  1. PROLIA [Suspect]
     Active Substance: DENOSUMAB

REACTIONS (3)
  - Ventricular extrasystoles [None]
  - Urinary tract infection [None]
  - Cystitis interstitial [None]
